FAERS Safety Report 5696071-5 (Version None)
Quarter: 2008Q2

REPORT INFORMATION
  Report Type: 
  Country: None (occurrence: None)
  Receive Date: 20080407
  Receipt Date: 20080403
  Transmission Date: 20081010
  Serious: Yes (Hospitalization, Other)
  Sender: FDA-Public Use
  Company Number: B0511644A

PATIENT
  Age: 9 Year
  Sex: Female

DRUGS (6)
  1. COMBIVIR [Suspect]
     Indication: HIV INFECTION
     Dates: start: 20080107, end: 20080304
  2. EFAVIRENZ [Suspect]
     Indication: HIV INFECTION
     Dates: start: 20080107
  3. ABACAVIR [Suspect]
     Indication: HIV INFECTION
     Dates: start: 20080107
  4. COTRIMOXAZOLE [Suspect]
     Dates: start: 20071210, end: 20080207
  5. MULTI-VITAMIN [Concomitant]
  6. VALPROATE SODIUM [Concomitant]
     Dates: start: 20080107

REACTIONS (7)
  - ABDOMINAL PAIN [None]
  - BRONCHOPNEUMONIA [None]
  - COUGH [None]
  - NEUROPATHY PERIPHERAL [None]
  - NEUTROPENIA [None]
  - PAIN IN EXTREMITY [None]
  - PYREXIA [None]
